FAERS Safety Report 10683750 (Version 1)
Quarter: 2014Q4

REPORT INFORMATION
  Report Type: Spontaneous
  Country: US (occurrence: US)
  Receive Date: 20141230
  Receipt Date: 20141230
  Transmission Date: 20150529
  Serious: No
  Sender: FDA-Public Use
  Company Number: US-BAYER-2014-191032

PATIENT
  Sex: Male
  Weight: 93 kg

DRUGS (4)
  1. ALEVE [Suspect]
     Active Substance: NAPROXEN SODIUM
  2. MELOXICAM. [Suspect]
     Active Substance: MELOXICAM
  3. MOBIC [Suspect]
     Active Substance: MELOXICAM
  4. TRAMADOL [Concomitant]
     Active Substance: TRAMADOL
     Indication: PAIN
     Dosage: 5 MG, A DAY

REACTIONS (1)
  - Drug ineffective [Unknown]
